FAERS Safety Report 5838835-0 (Version None)
Quarter: 2008Q3

REPORT INFORMATION
  Report Type: 
  Country: None (occurrence: None)
  Receive Date: 20080801
  Receipt Date: 20080509
  Transmission Date: 20090109
  Serious: Yes (Other)
  Sender: FDA-Public Use
  Company Number: 563567

PATIENT
  Age: 85 Year
  Sex: Female

DRUGS (6)
  1. BONIVA [Suspect]
     Indication: OSTEOPOROSIS
     Dates: start: 20071201
  2. ATENOLOL [Concomitant]
  3. PREDNISONE [Concomitant]
  4. SYNTHROID [Concomitant]
  5. 1 CONCOMITANT DRUG (GENERIC UNKNOWN) [Concomitant]
  6. PLAVIX [Concomitant]

REACTIONS (7)
  - BLOOD PRESSURE INCREASED [None]
  - DIZZINESS [None]
  - DRY MOUTH [None]
  - DYSPNOEA [None]
  - FATIGUE [None]
  - MYALGIA [None]
  - VIRAL INFECTION [None]
